FAERS Safety Report 10198306 (Version 1)
Quarter: 2014Q2

REPORT INFORMATION
  Report Type: Spontaneous
  Country: DE (occurrence: DE)
  Receive Date: 20140527
  Receipt Date: 20140527
  Transmission Date: 20141212
  Serious: Yes (Other)
  Sender: FDA-Public Use
  Company Number: DE-ASTRAZENECA-2014SE35043

PATIENT
  Age: 0 Day
  Sex: Female
  Weight: 2 kg

DRUGS (2)
  1. QUETIAPINE [Suspect]
     Indication: SCHIZOPHRENIA, PARANOID TYPE
     Route: 064
     Dates: start: 20130719, end: 20130719
  2. QUETIAPINE [Suspect]
     Indication: SUICIDAL IDEATION
     Route: 064
     Dates: start: 20130719, end: 20130719

REACTIONS (7)
  - Low birth weight baby [Recovering/Resolving]
  - Neonatal respiratory distress syndrome [Recovered/Resolved]
  - Hypotonia neonatal [Recovered/Resolved]
  - Feeding disorder neonatal [Recovered/Resolved]
  - Anaemia neonatal [Recovered/Resolved]
  - Foetal growth restriction [Unknown]
  - Temperature regulation disorder [Recovered/Resolved]
